FAERS Safety Report 7056368-3 (Version None)
Quarter: 2010Q4

REPORT INFORMATION
  Report Type: 
  Country: None (occurrence: None)
  Receive Date: 20101021
  Receipt Date: 20101012
  Transmission Date: 20110411
  Serious: Yes (Other)
  Sender: FDA-Public Use
  Company Number: IN-ASTRAZENECA-2010SE48026

PATIENT
  Age: 26 Year
  Sex: Male
  Weight: 50 kg

DRUGS (1)
  1. LIDOCAINE [Suspect]
     Indication: LOCAL ANAESTHESIA
     Route: 045

REACTIONS (4)
  - GRAND MAL CONVULSION [None]
  - HYPOAESTHESIA ORAL [None]
  - METABOLIC ACIDOSIS [None]
  - RESTLESSNESS [None]
